FAERS Safety Report 8923514 (Version 1)
Quarter: 2012Q4

REPORT INFORMATION
  Report Type: 
  Country: US (occurrence: US)
  Receive Date: 20121123
  Receipt Date: 20121123
  Transmission Date: 20130627
  Serious: Yes (Other)
  Sender: FDA-Public Use
  Company Number: US-PFIZER INC-2012291043

PATIENT
  Age: 69 Year
  Sex: Female
  Weight: 68.03 kg

DRUGS (4)
  1. TORISEL [Suspect]
     Indication: RENAL CANCER
     Dosage: UNK
     Dates: start: 20121108
  2. TORISEL [Suspect]
     Indication: LUNG CANCER
  3. TORISEL [Suspect]
     Indication: LIVER, CANCER OF
  4. TRAZODONE [Concomitant]
     Indication: SLEEP DISORDER
     Dosage: UNK

REACTIONS (5)
  - Blood pressure abnormal [Unknown]
  - Disease progression [Unknown]
  - Renal cancer [Unknown]
  - Nausea [Unknown]
  - Malaise [Unknown]
